FAERS Safety Report 21047300 (Version 1)
Quarter: 2022Q3

REPORT INFORMATION
  Report Type: Spontaneous
  Country: US (occurrence: None)
  Receive Date: 20220705
  Receipt Date: 20220705
  Transmission Date: 20221027
  Serious: Yes (Life-Threatening)
  Sender: FDA-Public Use
  Company Number: None

PATIENT
  Age: 77 Year
  Sex: Male
  Weight: 74.8 kg

DRUGS (1)
  1. CROFAB [Suspect]
     Active Substance: CROTALIDAE POLYVALENT IMMUNE FAB (OVINE)
     Indication: Venom poisoning
     Dosage: FREQUENCY : ONCE;?
     Route: 042
     Dates: start: 20220704, end: 20220704

REACTIONS (7)
  - Pruritus [None]
  - Loss of consciousness [None]
  - Hyperhidrosis [None]
  - Erythema [None]
  - Flushing [None]
  - Anaphylactic reaction [None]
  - Infusion related reaction [None]

NARRATIVE: CASE EVENT DATE: 20220704
